FAERS Safety Report 9170740 (Version 1)
Quarter: 2013Q1

REPORT INFORMATION
  Report Type: Spontaneous
  Country: US (occurrence: US)
  Receive Date: 20130319
  Receipt Date: 20130319
  Transmission Date: 20140127
  Serious: Yes (Hospitalization, Other)
  Sender: FDA-Public Use
  Company Number: US-SHIRE-ALL1-2013-01376

PATIENT
  Sex: Female
  Weight: 77.1 kg

DRUGS (9)
  1. AGRYLIN [Suspect]
     Dosage: UNK UNK, UNKNOWN
     Route: 048
  2. ATENOLOL [Suspect]
     Indication: BLOOD PRESSURE INCREASED
     Dosage: UNK, UNKNOWN
     Route: 065
     Dates: end: 2006
  3. NORVASC [Suspect]
     Indication: PRODUCT USED FOR UNKNOWN INDICATION
     Dosage: 5 MG, 2X/DAY:BID
     Route: 065
     Dates: start: 1998
  4. PROTONIX [Suspect]
     Indication: ASTHMA
     Dosage: 40 MG, 1X/DAY:QD
     Route: 065
     Dates: end: 2008
  5. PROTONIX [Suspect]
     Dosage: 40 MG, 2X/DAY:BID
     Route: 065
     Dates: start: 2008
  6. SYNTHROID [Suspect]
     Indication: PRODUCT USED FOR UNKNOWN INDICATION
     Dosage: UNK, UNKNOWN
     Route: 065
     Dates: start: 1995
  7. SYNTHROID [Suspect]
     Dosage: 0.112 MG, UNKNOWN
     Route: 065
  8. HYDREA [Suspect]
     Indication: THROMBOSIS
     Dosage: UNK, UNKNOWN
     Route: 065
     Dates: start: 2001
  9. COREG [Suspect]
     Indication: PRODUCT USED FOR UNKNOWN INDICATION
     Dosage: UNK, UNKNOWN
     Route: 065
     Dates: start: 2003, end: 2013

REACTIONS (4)
  - Erosive oesophagitis [Not Recovered/Not Resolved]
  - Blood pressure decreased [Recovered/Resolved]
  - Myocardial infarction [Unknown]
  - Off label use [Not Recovered/Not Resolved]
